FAERS Safety Report 19586571 (Version 1)
Quarter: 2021Q3

REPORT INFORMATION
  Report Type: Report from Study
  Country: US (occurrence: US)
  Receive Date: 20210720
  Receipt Date: 20210720
  Transmission Date: 20211014
  Serious: No
  Sender: FDA-Public Use
  Company Number: US-JAZZ-2014-US-007230

PATIENT
  Age: 41 Year
  Sex: Female
  Weight: 70.3 kg

DRUGS (6)
  1. XYREM [Suspect]
     Active Substance: SODIUM OXYBATE
     Dosage: 3 GRAM, BID
     Route: 048
     Dates: start: 2014, end: 2014
  2. XYREM [Suspect]
     Active Substance: SODIUM OXYBATE
     Dosage: 3.5 GRAM, BID
     Route: 048
     Dates: end: 2014
  3. PROGESTERONE. [Concomitant]
     Active Substance: PROGESTERONE
     Indication: PRODUCT USED FOR UNKNOWN INDICATION
     Dosage: UNK
  4. XYREM [Suspect]
     Active Substance: SODIUM OXYBATE
     Indication: CATAPLEXY
     Dosage: 3 GRAM, BID
     Route: 048
     Dates: start: 2014, end: 2014
  5. XYREM [Suspect]
     Active Substance: SODIUM OXYBATE
     Dosage: 4 GRAM, BID
     Route: 048
     Dates: start: 20140603, end: 20140607
  6. XYREM [Suspect]
     Active Substance: SODIUM OXYBATE
     Indication: NARCOLEPSY
     Dosage: 2.25 GRAM, BID
     Route: 048
     Dates: start: 20140517, end: 2014

REACTIONS (20)
  - Condition aggravated [Not Recovered/Not Resolved]
  - Clumsiness [Not Recovered/Not Resolved]
  - Pain in extremity [Not Recovered/Not Resolved]
  - Night sweats [Not Recovered/Not Resolved]
  - Somnolence [Not Recovered/Not Resolved]
  - Bronchitis [Recovering/Resolving]
  - Hepatic pain [Recovered/Resolved]
  - Insomnia [Not Recovered/Not Resolved]
  - Dizziness [Recovered/Resolved]
  - Flat affect [Not Recovered/Not Resolved]
  - Back pain [Not Recovered/Not Resolved]
  - Tremor [Unknown]
  - Pollakiuria [Unknown]
  - Chills [Unknown]
  - Dyspnoea [Recovered/Resolved]
  - Post-traumatic stress disorder [Unknown]
  - Depression [Not Recovered/Not Resolved]
  - Back disorder [Not Recovered/Not Resolved]
  - Asthenia [Unknown]
  - Arthralgia [Not Recovered/Not Resolved]

NARRATIVE: CASE EVENT DATE: 2014
